FAERS Safety Report 7972220-0 (Version None)
Quarter: 2011Q4

REPORT INFORMATION
  Report Type: 
  Country: None (occurrence: None)
  Receive Date: 20111212
  Receipt Date: 20111201
  Transmission Date: 20120403
  Serious: Yes (Other)
  Sender: FDA-Public Use
  Company Number: US-MYLANLABS-2011S1024968

PATIENT
  Sex: Female

DRUGS (5)
  1. LEVOTHYROXINE SODIUM [Suspect]
     Indication: HYPOTHYROIDISM
     Route: 048
     Dates: start: 20111115
  2. ASPIRIN [Concomitant]
  3. NORVASC [Concomitant]
     Indication: BLOOD PRESSURE INCREASED
  4. VIIBRYD [Suspect]
     Indication: DEPRESSION
     Route: 048
     Dates: start: 20111115
  5. LISINOPRIL [Concomitant]
     Indication: BLOOD PRESSURE INCREASED

REACTIONS (3)
  - BLOOD PRESSURE INCREASED [None]
  - TINNITUS [None]
  - SLEEP DISORDER [None]
